FAERS Safety Report 8007931-4 (Version None)
Quarter: 2011Q4

REPORT INFORMATION
  Report Type: 
  Country: None (occurrence: None)
  Receive Date: 20111227
  Receipt Date: 20111222
  Transmission Date: 20120403
  Serious: Yes (Congenital Anomaly, Other)
  Sender: FDA-Public Use
  Company Number: US-PFIZER INC-2011274690

PATIENT
  Sex: Female
  Weight: 2.87 kg

DRUGS (14)
  1. ZOLOFT [Suspect]
     Indication: DEPRESSION
  2. ZITHROMAX [Concomitant]
     Dosage: UNK
     Route: 064
     Dates: start: 20080428
  3. TYLENOL SINUS [Concomitant]
     Indication: SINUS CONGESTION
     Dosage: 2 TABLETS, AS NEEDED
     Route: 064
  4. VITAMIN B-12 [Concomitant]
     Indication: PERNICIOUS ANAEMIA
     Dosage: 1 ML, MONTHLY
     Route: 064
     Dates: start: 20080328
  5. DARVOCET-N 50 [Concomitant]
     Indication: PAIN
     Dosage: 100 MG, UNK
     Route: 064
     Dates: start: 20080328
  6. MULTI-VITAMINS [Concomitant]
     Indication: MEDICAL DIET
     Dosage: 1 TABLET, DAILY
     Route: 064
  7. NITROFURANTOIN [Concomitant]
     Indication: URINARY TRACT INFECTION
     Dosage: 100 MG, 2X/DAY
     Route: 064
     Dates: start: 20081014
  8. ZOFRAN [Concomitant]
     Indication: VOMITING
  9. EPINEPHRINE [Concomitant]
     Indication: HYPERSENSITIVITY
     Dosage: 0.3 MG, AS NEEDED
     Route: 064
     Dates: start: 20080620
  10. ZOFRAN [Concomitant]
     Indication: NAUSEA
     Dosage: 8 MG, AS NEEDED
     Route: 064
     Dates: start: 20080414
  11. PROGESTERONE [Concomitant]
     Indication: PREMATURE DELIVERY
     Dosage: 250 MG, WEEKLY
     Route: 064
     Dates: start: 20080620
  12. ZOLOFT [Suspect]
     Indication: ANXIETY
     Dosage: 50 MG, 1X/DAY
     Route: 064
     Dates: start: 20080101
  13. IRON [Concomitant]
     Indication: PERNICIOUS ANAEMIA
     Dosage: UNK
     Route: 064
     Dates: start: 20080328
  14. BENADRYL [Concomitant]
     Indication: HYPERSENSITIVITY
     Dosage: 2 TABLETS, AS NEEDED
     Route: 064
     Dates: start: 20080620

REACTIONS (3)
  - VENTRICULAR SEPTAL DEFECT [None]
  - PATENT DUCTUS ARTERIOSUS [None]
  - MATERNAL EXPOSURE TIMING UNSPECIFIED [None]
